FAERS Safety Report 9034483 (Version 1)
Quarter: 2013Q1

REPORT INFORMATION
  Report Type: Spontaneous
  Country: US (occurrence: None)
  Receive Date: 20130116
  Receipt Date: 20130116
  Transmission Date: 20140127
  Serious: No
  Sender: FDA-Public Use
  Company Number: None

PATIENT
  Age: 45 Year
  Sex: Female

DRUGS (2)
  1. PEGASYS 180MCG GENENTECH [Suspect]
     Dates: start: 20120822
  2. RIBAPAK [Suspect]
     Route: 048
     Dates: start: 20120822

REACTIONS (1)
  - Headache [None]
